FAERS Safety Report 26155779 (Version 1)
Quarter: 2025Q4

REPORT INFORMATION
  Report Type: Spontaneous
  Country: US (occurrence: US)
  Receive Date: 20251215
  Receipt Date: 20251215
  Transmission Date: 20260117
  Serious: No
  Sender: ALKEM
  Company Number: US-ALKEM LABORATORIES LIMITED-US-ALKEM-2025-02892

PATIENT
  Age: 63 Year
  Sex: Female

DRUGS (3)
  1. TACROLIMUS [Suspect]
     Active Substance: TACROLIMUS
     Indication: Immunosuppressant drug therapy
     Dosage: UNK (ON POSTOPERATIVE DAY 7)
     Route: 048
  2. TACROLIMUS [Suspect]
     Active Substance: TACROLIMUS
     Dosage: UNK (RATIO OF 1:2) (ON POSTOPERATIVE DAY 110)
     Route: 060
  3. FLUCONAZOLE [Concomitant]
     Active Substance: FLUCONAZOLE
     Indication: Systemic candida
     Dosage: 400 MILLIGRAM, QD (DAILY) (ON POSTOPERATIVE DAY 1)
     Route: 048

REACTIONS (1)
  - Drug level fluctuating [Recovering/Resolving]
